FAERS Safety Report 24664764 (Version 2)
Quarter: 2025Q1

REPORT INFORMATION
  Report Type: Other
  Country: CA (occurrence: CA)
  Receive Date: 20241126
  Receipt Date: 20250123
  Transmission Date: 20250408
  Serious: Yes (Other)
  Sender: TOLMAR
  Company Number: CA-TOLMAR, INC.-24CA053716

PATIENT
  Sex: Male

DRUGS (5)
  1. ELIGARD [Suspect]
     Active Substance: LEUPROLIDE ACETATE
     Indication: Prostate cancer
     Dosage: 7.5 MILLIGRAM, Q 1 MONTH
     Route: 058
     Dates: start: 20240930
  2. ELIGARD [Suspect]
     Active Substance: LEUPROLIDE ACETATE
     Dosage: 7.5 MILLIGRAM, Q 1 MONTH
     Route: 058
     Dates: start: 20241028
  3. ELIGARD [Suspect]
     Active Substance: LEUPROLIDE ACETATE
     Dosage: 7.5 MILLIGRAM, Q 1 MONTH
     Route: 058
     Dates: start: 20241125
  4. ELIGARD [Suspect]
     Active Substance: LEUPROLIDE ACETATE
     Indication: Prostate cancer
  5. UNSPECIFIED INGREDIENT [Concomitant]
     Active Substance: UNSPECIFIED INGREDIENT
     Indication: Product used for unknown indication

REACTIONS (4)
  - Thrombophlebitis [Unknown]
  - Loss of consciousness [Unknown]
  - Dizziness postural [Unknown]
  - Hypotension [Unknown]
